FAERS Safety Report 5423373-X (Version None)
Quarter: 2007Q3

REPORT INFORMATION
  Report Type: 
  Country: None (occurrence: None)
  Receive Date: 20070823
  Receipt Date: 20070816
  Transmission Date: 20080115
  Serious: Yes (Hospitalization)
  Sender: FDA-Public Use
  Company Number: US-JNJFOC-20070804046

PATIENT
  Sex: Female
  Weight: 163.3 kg

DRUGS (11)
  1. DURAGESIC-100 [Suspect]
     Indication: PAIN
     Dosage: 2X 75UG/HR PATCHES
     Route: 062
  2. ORAL MORPHINE [Suspect]
     Indication: PAIN
     Route: 048
  3. IBUPROFEN TABLETS [Concomitant]
     Indication: INFLAMMATION
     Route: 048
  4. GABAPENTIN [Concomitant]
     Indication: SCIATICA
     Route: 048
  5. HYDROCODONE BITARTRATE [Concomitant]
     Indication: PAIN
     Dosage: 10/325MG
     Route: 048
  6. METFORMIN HCL [Concomitant]
     Indication: DIABETES MELLITUS
     Route: 048
  7. AVANDIA [Concomitant]
     Indication: DIABETES MELLITUS
     Route: 048
  8. ZOLPIDEM TARTRATE [Concomitant]
     Indication: SLEEP DISORDER
     Route: 048
  9. BENICAR [Concomitant]
     Indication: BLOOD PRESSURE
     Route: 048
  10. ASPIRIN [Concomitant]
     Indication: PAIN
     Route: 048
  11. LEXAPRO [Concomitant]
     Indication: DEPRESSION
     Route: 048

REACTIONS (5)
  - ABNORMAL BEHAVIOUR [None]
  - AGGRESSION [None]
  - FALL [None]
  - JOINT INJURY [None]
  - WRONG TECHNIQUE IN DRUG USAGE PROCESS [None]
